FAERS Safety Report 6720363-1 (Version None)
Quarter: 2010Q2

REPORT INFORMATION
  Report Type: 
  Country: None (occurrence: None)
  Receive Date: 20100511
  Receipt Date: 20100505
  Transmission Date: 20101027
  Serious: Yes (Other)
  Sender: FDA-Public Use
  Company Number: US-PFIZER INC-2010056433

PATIENT
  Sex: Male

DRUGS (2)
  1. CELEBREX [Suspect]
     Indication: BACK PAIN
     Dosage: 400 MG, 1X/DAY
     Route: 048
  2. SKELAXIN [Concomitant]
     Dosage: UNK

REACTIONS (1)
  - MUSCLE SPASMS [None]
